FAERS Safety Report 10258040 (Version 1)
Quarter: 2014Q2

REPORT INFORMATION
  Report Type: Spontaneous
  Country: US (occurrence: US)
  Receive Date: 20140625
  Receipt Date: 20140625
  Transmission Date: 20141212
  Serious: No
  Sender: FDA-Public Use
  Company Number: US-PFIZER INC-2014172123

PATIENT
  Sex: Female

DRUGS (2)
  1. CELEBREX [Suspect]
     Dosage: 200 MG, DAILY
     Dates: start: 201406
  2. DICLOFENAC SODIUM [Suspect]
     Dosage: 75 MG, UNK
     Dates: start: 2014, end: 2014

REACTIONS (6)
  - Rash erythematous [Unknown]
  - Skin exfoliation [Unknown]
  - Rash pruritic [Unknown]
  - Rash papular [Unknown]
  - Erythema [Unknown]
  - Rash generalised [Unknown]
